FAERS Safety Report 8345184-8 (Version None)
Quarter: 2012Q2

REPORT INFORMATION
  Report Type: 
  Country: None (occurrence: None)
  Receive Date: 20120508
  Receipt Date: 20120502
  Transmission Date: 20120825
  Serious: Yes (Hospitalization, Other)
  Sender: FDA-Public Use
  Company Number: US-BAYER-2012-043806

PATIENT

DRUGS (1)
  1. NAPROXEN SODIUM [Suspect]
     Dosage: UNK
     Route: 048

REACTIONS (1)
  - GASTRIC ULCER HAEMORRHAGE [None]
